FAERS Safety Report 17966793 (Version 1)
Quarter: 2020Q2

REPORT INFORMATION
  Report Type: Spontaneous
  Country: GB (occurrence: GB)
  Receive Date: 20200630
  Receipt Date: 20200630
  Transmission Date: 20200714
  Serious: Yes (Life-Threatening, Other)
  Sender: FDA-Public Use
  Company Number: GB-SUN PHARMACEUTICAL INDUSTRIES LTD-2020RR-252043

PATIENT
  Age: 93 Year
  Sex: Female
  Weight: 45 kg

DRUGS (3)
  1. LAXIDO [Suspect]
     Active Substance: POLYETHYLENE GLYCOL 3350\POTASSIUM CHLORIDE\SODIUM BICARBONATE\SODIUM CHLORIDE
     Indication: CONSTIPATION
     Dosage: 13.13 MILLIGRAM, UNK
     Route: 048
     Dates: start: 20200117, end: 20200601
  2. BUMETANIDE. [Suspect]
     Active Substance: BUMETANIDE
     Indication: FLUID RETENTION
     Dosage: 5 MILLIGRAM, UNK
     Route: 048
  3. LANSOPRAZOLE. [Suspect]
     Active Substance: LANSOPRAZOLE
     Indication: GASTROOESOPHAGEAL REFLUX DISEASE
     Dosage: 15 MILLIGRAM, UNK
     Route: 048

REACTIONS (3)
  - Hypokalaemia [Unknown]
  - Pruritus [Not Recovered/Not Resolved]
  - Hypernatraemia [Unknown]

NARRATIVE: CASE EVENT DATE: 20200529
